FAERS Safety Report 6085055-3 (Version None)
Quarter: 2009Q1

REPORT INFORMATION
  Report Type: 
  Country: None (occurrence: None)
  Receive Date: 20090218
  Receipt Date: 20080401
  Transmission Date: 20090719
  Serious: No
  Sender: FDA-Public Use
  Company Number: 2008S1005385

PATIENT
  Sex: Female

DRUGS (1)
  1. LOVASTATIN [Suspect]
     Dosage: ORAL
     Route: 048

REACTIONS (2)
  - ARTHRALGIA [None]
  - WEIGHT INCREASED [None]
